FAERS Safety Report 4365353-1 (Version None)
Quarter: 2004Q2

REPORT INFORMATION
  Report Type: 
  Country: None (occurrence: None)
  Receive Date: 20040520
  Receipt Date: 20040511
  Transmission Date: 20050107
  Serious: Yes (Hospitalization)
  Sender: FDA-Public Use
  Company Number: MK200405-0269-1

PATIENT
  Age: 47 Year
  Sex: Male

DRUGS (6)
  1. ANAFRANIL CAP [Suspect]
     Dosage: 75MG, DAILY
     Dates: start: 20030615, end: 20040328
  2. EQUANIL [Suspect]
     Dosage: 1000MG DAILY
     Dates: start: 20040322, end: 20040327
  3. DEPAKOTE [Suspect]
     Dosage: 500MG BID
     Dates: start: 20040227, end: 20040328
  4. LAROXYL [Suspect]
     Dosage: 50MG DAILY
     Dates: start: 20040313, end: 20040328
  5. ATARAX [Suspect]
     Dosage: 400MG DAILY
     Dates: start: 20040309, end: 20040328
  6. HAVLANE [Suspect]
     Dosage: 1MG DAILY
     Dates: end: 20040328

REACTIONS (9)
  - ACCOMMODATION DISORDER [None]
  - COGWHEEL RIGIDITY [None]
  - CONDITION AGGRAVATED [None]
  - DIFFICULTY IN WALKING [None]
  - DIZZINESS [None]
  - DYSURIA [None]
  - HYPERHIDROSIS [None]
  - MUSCULOSKELETAL STIFFNESS [None]
  - TREMOR [None]
